FAERS Safety Report 12143685 (Version 1)
Quarter: 2016Q1

REPORT INFORMATION
  Report Type: Spontaneous
  Country: US (occurrence: US)
  Receive Date: 20160304
  Receipt Date: 20160304
  Transmission Date: 20160526
  Serious: No
  Sender: FDA-Public Use
  Company Number: US-JNJFOC-20160209848

PATIENT
  Age: 66 Year
  Sex: Male
  Weight: 90.72 kg

DRUGS (3)
  1. ROGAINE [Suspect]
     Active Substance: MINOXIDIL
     Route: 061
  2. ROGAINE [Suspect]
     Active Substance: MINOXIDIL
     Indication: PRODUCT USED FOR UNKNOWN INDICATION
     Dosage: ONE DROPR FULL????DRUG STOPPED IN NOVEMBER
     Route: 061
  3. LIPITOR [Concomitant]
     Active Substance: ATORVASTATIN CALCIUM
     Indication: PROPHYLAXIS
     Dosage: TAKING SINCE 18 YEARS
     Route: 065

REACTIONS (2)
  - Rash [Recovered/Resolved]
  - Scab [Recovered/Resolved]
